FAERS Safety Report 6471884-0 (Version None)
Quarter: 2009Q4

REPORT INFORMATION
  Report Type: 
  Country: None (occurrence: None)
  Receive Date: 20091203
  Receipt Date: 20081202
  Transmission Date: 20100525
  Serious: No
  Sender: FDA-Public Use
  Company Number: US-AMGEN-KDL321810

PATIENT
  Sex: Female

DRUGS (1)
  1. ENBREL [Suspect]
     Indication: RHEUMATOID ARTHRITIS
     Route: 058
     Dates: start: 20021201

REACTIONS (5)
  - BACK PAIN [None]
  - INTERVERTEBRAL DISC PROTRUSION [None]
  - MOUTH ULCERATION [None]
  - MUSCULOSKELETAL STIFFNESS [None]
  - SKIN ULCER [None]
